FAERS Safety Report 6129473-3 (Version None)
Quarter: 2009Q1

REPORT INFORMATION
  Report Type: 
  Country: None (occurrence: None)
  Receive Date: 20090324
  Receipt Date: 20090313
  Transmission Date: 20090719
  Serious: Yes (Hospitalization)
  Sender: FDA-Public Use
  Company Number: FR-PFIZER INC-2006101761

PATIENT

DRUGS (8)
  1. PHENYTOIN AND PHENYTOIN SODIUM [Suspect]
     Indication: DRUG USE FOR UNKNOWN INDICATION
     Dosage: FREQUENCY:  DAY
     Route: 048
     Dates: start: 20060428
  2. ETOPOSIDE [Suspect]
     Indication: DRUG USE FOR UNKNOWN INDICATION
     Dosage: 1 DF
     Route: 048
     Dates: start: 20060605, end: 20060608
  3. CYCLOPHOSPHAMIDE [Suspect]
     Indication: DRUG USE FOR UNKNOWN INDICATION
     Dosage: DAY
     Route: 048
     Dates: start: 20060509, end: 20060529
  4. CELEBREX [Suspect]
     Indication: DRUG USE FOR UNKNOWN INDICATION
     Dosage: DAY
     Route: 048
     Dates: start: 20060509
  5. CARBAMAZEPINE [Suspect]
     Indication: DRUG USE FOR UNKNOWN INDICATION
     Dosage: DAY
     Route: 048
     Dates: start: 20060428
  6. OMEPRAZOLE [Suspect]
     Indication: DRUG USE FOR UNKNOWN INDICATION
     Dosage: UDAY
     Route: 065
  7. PREDNISOLONE [Concomitant]
     Route: 065
  8. CLONAZEPAM [Concomitant]
     Route: 065
     Dates: start: 20060428

REACTIONS (1)
  - PNEUMONIA [None]
